FAERS Safety Report 5301282-4 (Version None)
Quarter: 2007Q2

REPORT INFORMATION
  Report Type: 
  Country: None (occurrence: None)
  Receive Date: 20070418
  Receipt Date: 20070410
  Transmission Date: 20071010
  Serious: Yes (Hospitalization, Other)
  Sender: FDA-Public Use
  Company Number: US-PFIZER INC-2007028998

PATIENT
  Sex: Female
  Weight: 52.2 kg

DRUGS (2)
  1. GEODON [Suspect]
     Indication: SCHIZOPHRENIA
     Dates: start: 20050801, end: 20060628
  2. PROLIXIN [Concomitant]

REACTIONS (2)
  - SUICIDAL BEHAVIOUR [None]
  - SUICIDE ATTEMPT [None]
